FAERS Safety Report 6782656-1 (Version None)
Quarter: 2010Q2

REPORT INFORMATION
  Report Type: 
  Country: None (occurrence: None)
  Receive Date: 20100621
  Receipt Date: 20100608
  Transmission Date: 20101027
  Serious: Yes (Hospitalization, Other)
  Sender: FDA-Public Use
  Company Number: PHHY2010IT36709

PATIENT
  Age: 59 Year
  Sex: Male

DRUGS (5)
  1. CYCLOSPORINE [Suspect]
     Indication: RENAL TRANSPLANT
     Route: 048
  2. MYCOPHENOLATE MOFETIL [Suspect]
     Indication: RENAL TRANSPLANT
  3. TICLOPIDINE HCL [Suspect]
     Indication: RENAL TRANSPLANT
  4. MESALAZINE [Suspect]
     Indication: RENAL TRANSPLANT
     Dosage: UNK
  5. STEROIDS NOS [Suspect]

REACTIONS (18)
  - ABDOMINAL PAIN [None]
  - ANAEMIA [None]
  - ANISOCYTOSIS [None]
  - ASTHENIA [None]
  - ATRIAL FIBRILLATION [None]
  - BLOOD IRON DECREASED [None]
  - BLOOD LACTATE DEHYDROGENASE INCREASED [None]
  - DIARRHOEA HAEMORRHAGIC [None]
  - EPSTEIN-BARR VIRUS INFECTION [None]
  - GASTRIC MUCOSAL LESION [None]
  - ISCHAEMIA [None]
  - MUCOSAL EROSION [None]
  - NECROSIS [None]
  - PROTHROMBIN LEVEL DECREASED [None]
  - PYREXIA [None]
  - SCAR [None]
  - SOFT TISSUE INJURY [None]
  - THROMBOTIC MICROANGIOPATHY [None]
